FAERS Safety Report 7117258-0 (Version None)
Quarter: 2010Q4

REPORT INFORMATION
  Report Type: 
  Country: None (occurrence: None)
  Receive Date: 20101112
  Receipt Date: 20101027
  Transmission Date: 20110411
  Serious: Yes (Hospitalization)
  Sender: FDA-Public Use
  Company Number: AUR-APL-2010-02690

PATIENT
  Age: 80 Year
  Sex: Female

DRUGS (4)
  1. CITALOPRAM HYDROBROMIDE [Suspect]
     Indication: DEPRESSION
     Dosage: 20MG - ORAL
     Route: 048
     Dates: start: 20100925, end: 20101011
  2. AMISULPRIDE [Suspect]
     Indication: DEPRESSION
     Dosage: 50MG - ORAL
     Route: 048
     Dates: start: 20100929, end: 20101011
  3. METHOTREXATE [Concomitant]
  4. .. [Concomitant]

REACTIONS (1)
  - NEUTROPENIA [None]
